FAERS Safety Report 9374886 (Version 1)
Quarter: 2013Q2

REPORT INFORMATION
  Report Type: Spontaneous
  Country: US (occurrence: US)
  Receive Date: 20130628
  Receipt Date: 20130628
  Transmission Date: 20140414
  Serious: No
  Sender: FDA-Public Use
  Company Number: US-009507513-1306USA013355

PATIENT
  Age: 86 Year
  Sex: Female

DRUGS (5)
  1. JANUVIA [Suspect]
     Indication: DIABETES MELLITUS
     Dosage: UNK
     Route: 048
     Dates: start: 201305
  2. [COMPOSITION UNSPECIFIED] [Concomitant]
     Indication: BLOOD PRESSURE
     Dosage: UNK
  3. [COMPOSITION UNSPECIFIED] [Concomitant]
     Indication: BLOOD CHOLESTEROL
     Dosage: UNK
  4. ASPIRIN [Concomitant]
  5. VITAMINS (UNSPECIFIED) [Concomitant]
     Dosage: UNK

REACTIONS (1)
  - Constipation [Not Recovered/Not Resolved]
